FAERS Safety Report 8922018 (Version 1)
Quarter: 2012Q4

REPORT INFORMATION
  Report Type: Spontaneous
  Country: US (occurrence: None)
  Receive Date: 20121120
  Receipt Date: 20121120
  Transmission Date: 20130627
  Serious: No
  Sender: FDA-Public Use
  Company Number: None

PATIENT
  Sex: Female

DRUGS (1)
  1. ENBREL 50 MG/ML IMMUNEX [Suspect]
     Indication: RHEUMATOID ARTHRITIS
     Dosage: 50 mg once weekly sq
     Route: 058
     Dates: start: 20121012, end: 20121115

REACTIONS (2)
  - Depression [None]
  - Crying [None]
